FAERS Safety Report 7139337-4 (Version None)
Quarter: 2010Q4

REPORT INFORMATION
  Report Type: 
  Country: None (occurrence: None)
  Receive Date: 20101206
  Receipt Date: 20101122
  Transmission Date: 20110411
  Serious: Yes (Hospitalization)
  Sender: FDA-Public Use
  Company Number: US-MYLANLABS-2010S1021735

PATIENT
  Age: 15 Year
  Sex: Male

DRUGS (2)
  1. BUPROPION HCL [Suspect]
     Indication: OVERDOSE
     Dosage: 10 X 300MG CONTROLLED-RELEASE TABLETS.
     Route: 048
  2. BUPROPION HCL [Suspect]
     Dosage: CONTROLLED-RELEASE
     Route: 048

REACTIONS (2)
  - OVERDOSE [None]
  - SEROTONIN SYNDROME [None]
